FAERS Safety Report 16249712 (Version 1)
Quarter: 2019Q2

REPORT INFORMATION
  Report Type: Spontaneous
  Country: US (occurrence: US)
  Receive Date: 20190429
  Receipt Date: 20190429
  Transmission Date: 20190711
  Serious: Yes (Other)
  Sender: FDA-Public Use
  Company Number: US-TEVA-2019-US-1043208

PATIENT
  Sex: Female

DRUGS (1)
  1. CLONAZEPAM TABLET ACTAVIS [Suspect]
     Active Substance: CLONAZEPAM

REACTIONS (5)
  - Crying [Unknown]
  - Screaming [Unknown]
  - Abnormal behaviour [Unknown]
  - Suicidal ideation [Unknown]
  - Verbal abuse [Unknown]
